FAERS Safety Report 5124250-4 (Version None)
Quarter: 2006Q4

REPORT INFORMATION
  Report Type: 
  Country: None (occurrence: None)
  Receive Date: 20061010
  Receipt Date: 20061005
  Transmission Date: 20070319
  Serious: Yes (Hospitalization)
  Sender: FDA-Public Use
  Company Number: FR-BRISTOL-MYERS SQUIBB COMPANY-13533237

PATIENT
  Age: 47 Year
  Sex: Female

DRUGS (6)
  1. COUMADIN [Suspect]
     Indication: PHLEBITIS
     Route: 048
  2. COUMADIN [Suspect]
     Route: 048
  3. PREVISCAN [Suspect]
     Route: 048
     Dates: start: 20051201, end: 20060816
  4. SINTROM [Suspect]
     Route: 048
     Dates: start: 20051201, end: 20060816
  5. DIANTALVIC [Concomitant]
     Indication: BACK PAIN
     Route: 048
     Dates: start: 20060701
  6. RIVOTRIL [Concomitant]
     Indication: BACK PAIN
     Route: 048
     Dates: start: 20060701

REACTIONS (2)
  - ARTHRALGIA [None]
  - MYALGIA [None]
